FAERS Safety Report 10219369 (Version 1)
Quarter: 2014Q2

REPORT INFORMATION
  Report Type: Spontaneous
  Country: US (occurrence: None)
  Receive Date: 20140604
  Receipt Date: 20140604
  Transmission Date: 20141212
  Serious: Yes (Life-Threatening, Hospitalization)
  Sender: FDA-Public Use
  Company Number: None

PATIENT
  Age: 53 Year
  Sex: Female
  Weight: 56.7 kg

DRUGS (1)
  1. CLINDAMYCIN [Suspect]
     Indication: TOOTH ABSCESS
     Dosage: 1, FOUR TIMES DAILY, TAKEN BY MOUTH
     Route: 048
     Dates: start: 20130827, end: 20130903

REACTIONS (7)
  - Diarrhoea [None]
  - Pyrexia [None]
  - Dehydration [None]
  - Hypotension [None]
  - Tachycardia [None]
  - Community acquired infection [None]
  - Clostridium difficile infection [None]
